FAERS Safety Report 14850549 (Version 1)
Quarter: 2018Q2

REPORT INFORMATION
  Report Type: Report from Study
  Country: SE (occurrence: SE)
  Receive Date: 20180506
  Receipt Date: 20180506
  Transmission Date: 20180711
  Serious: Yes (Hospitalization)
  Sender: FDA-Public Use
  Company Number: SE-IPSEN BIOPHARMACEUTICALS, INC.-2018-06188

PATIENT
  Age: 62 Year
  Sex: Male
  Weight: 67.7 kg

DRUGS (3)
  1. SOMATULINE AUTOGEL 120MG [Suspect]
     Active Substance: LANREOTIDE ACETATE
     Indication: NEUROENDOCRINE TUMOUR
     Dosage: 120 MG
     Route: 065
     Dates: start: 20160202
  2. CREON [Concomitant]
     Active Substance: PANCRELIPASE AMYLASE\PANCRELIPASE LIPASE\PANCRELIPASE PROTEASE
     Dates: start: 20160128
  3. JANUVIA [Concomitant]
     Active Substance: SITAGLIPTIN PHOSPHATE
     Dates: start: 20171212

REACTIONS (1)
  - Acute myocardial infarction [Recovering/Resolving]

NARRATIVE: CASE EVENT DATE: 20180405
